FAERS Safety Report 21690310 (Version 1)
Quarter: 2022Q4

REPORT INFORMATION
  Report Type: Spontaneous
  Country: US (occurrence: None)
  Receive Date: 20221206
  Receipt Date: 20221206
  Transmission Date: 20230112
  Serious: Yes (Hospitalization)
  Sender: FDA-Public Use
  Company Number: None

PATIENT
  Age: 51 Year
  Sex: Male
  Weight: 111.5 kg

DRUGS (4)
  1. FLUOROURACIL [Suspect]
     Active Substance: FLUOROURACIL
     Dates: end: 20221121
  2. IRINOTECAN [Suspect]
     Active Substance: IRINOTECAN
     Dates: end: 20221121
  3. LEUCOVORIN CALCIUM [Suspect]
     Active Substance: LEUCOVORIN CALCIUM
     Dates: end: 20221121
  4. OXALIPLATIN [Suspect]
     Active Substance: OXALIPLATIN
     Dates: end: 20221121

REACTIONS (3)
  - Sepsis [None]
  - Pyrexia [None]
  - Neutrophil count decreased [None]

NARRATIVE: CASE EVENT DATE: 20221130
